FAERS Safety Report 23704953 (Version 2)
Quarter: 2024Q2

REPORT INFORMATION
  Report Type: Spontaneous
  Country: US (occurrence: US)
  Receive Date: 20240404
  Receipt Date: 20240424
  Transmission Date: 20240716
  Serious: No
  Sender: FDA-Public Use
  Company Number: US-JNJFOC-20240400227

PATIENT
  Age: 59 Year
  Sex: Female

DRUGS (2)
  1. TREMFYA [Suspect]
     Active Substance: GUSELKUMAB
     Indication: Psoriasis
     Route: 058
     Dates: start: 20191213, end: 202312
  2. TREMFYA [Suspect]
     Active Substance: GUSELKUMAB
     Route: 058
     Dates: start: 20240404

REACTIONS (3)
  - Condition aggravated [Unknown]
  - Therapy cessation [Recovered/Resolved]
  - Psoriasis [Recovered/Resolved]

NARRATIVE: CASE EVENT DATE: 20231201
